FAERS Safety Report 6516916-6 (Version None)
Quarter: 2009Q4

REPORT INFORMATION
  Report Type: 
  Country: None (occurrence: None)
  Receive Date: 20091223
  Receipt Date: 20091026
  Transmission Date: 20100525
  Serious: No
  Sender: FDA-Public Use
  Company Number: US-ASTRAZENECA-2009SE22791

PATIENT
  Sex: Female

DRUGS (3)
  1. CRESTOR [Suspect]
     Indication: BLOOD CHOLESTEROL INCREASED
     Route: 048
  2. AROMASIN [Concomitant]
     Indication: BREAST CANCER
  3. FOSAMAX [Concomitant]
     Indication: BONE DENSITY DECREASED

REACTIONS (1)
  - PAIN [None]
